FAERS Safety Report 11407417 (Version 10)
Quarter: 2016Q3

REPORT INFORMATION
  Report Type: Spontaneous
  Country: US (occurrence: US)
  Receive Date: 20150821
  Receipt Date: 20160916
  Transmission Date: 20161109
  Serious: No
  Sender: FDA-Public Use
  Company Number: US-ACTELION PHARMACEUTICALS US, INC.-A-NJ2015-121034

PATIENT
  Age: 67 Year
  Sex: Female

DRUGS (12)
  1. VALCHLOR [Suspect]
     Active Substance: MECHLORETHAMINE
     Indication: MYCOSIS FUNGOIDES
     Dosage: EVERY OTHER DAY
     Route: 061
     Dates: start: 20150608
  2. METFORMIN [Concomitant]
     Active Substance: METFORMIN HYDROCHLORIDE
     Indication: ESSENTIAL HYPERTENSION
     Dosage: 1000 MG, UNK
  3. CLOBETASOL [Concomitant]
     Active Substance: CLOBETASOL
  4. NOVOLOG [Concomitant]
     Active Substance: INSULIN ASPART
  5. PRAMOSONE [Concomitant]
     Active Substance: HYDROCORTISONE ACETATE\PRAMOXINE HYDROCHLORIDE
     Dosage: 1 %, UNK
  6. VALCHLOR [Suspect]
     Active Substance: MECHLORETHAMINE
     Dosage: UNK, QD
     Route: 061
  7. LANTUS [Concomitant]
     Active Substance: INSULIN GLARGINE
     Dosage: UNK
  8. MOMETASONE FUROATE. [Concomitant]
     Active Substance: MOMETASONE FUROATE
     Dosage: 0.1 %, UNK
  9. SEROQUEL [Concomitant]
     Active Substance: QUETIAPINE FUMARATE
     Dosage: 100 MG, UNK
  10. ALLERGY [Concomitant]
     Active Substance: UNSPECIFIED INGREDIENT
     Dosage: 10 MG, UNK
  11. EUCERIN [Concomitant]
     Active Substance: ENSULIZOLE\EUCERIN\OCTINOXATE\OCTISALATE\TITANIUM DIOXIDE\ZINC OXIDE
  12. DESENEX NOS [Concomitant]
     Active Substance: CLOTRIMAZOLE OR MICONAZOLE NITRATE

REACTIONS (20)
  - Contusion [Unknown]
  - Pruritus [Unknown]
  - Application site warmth [Unknown]
  - Skin fissures [Unknown]
  - Disease progression [Unknown]
  - Rash pruritic [Not Recovered/Not Resolved]
  - Application site pain [Unknown]
  - Eczema [Unknown]
  - Application site inflammation [Unknown]
  - Feeling abnormal [Unknown]
  - Skin exfoliation [Unknown]
  - Skin discolouration [Not Recovered/Not Resolved]
  - Dry skin [Unknown]
  - Skin burning sensation [Unknown]
  - Rash [Unknown]
  - Balance disorder [Unknown]
  - Skin hyperpigmentation [Not Recovered/Not Resolved]
  - Erythema [Unknown]
  - Ear infection [Recovered/Resolved]
  - Skin irritation [Unknown]
